FAERS Safety Report 6144509-1 (Version None)
Quarter: 2009Q2

REPORT INFORMATION
  Report Type: 
  Country: None (occurrence: None)
  Receive Date: 20090401
  Receipt Date: 20090105
  Transmission Date: 20091009
  Serious: Yes (Hospitalization)
  Sender: FDA-Public Use
  Company Number: 183335USA

PATIENT
  Age: 47 Year
  Sex: Male

DRUGS (7)
  1. LAMOTRIGINE [Suspect]
     Indication: BIPOLAR DISORDER
     Dosage: 500 MG (500 MG, 1 IN 1 D), ORAL
     Route: 048
     Dates: start: 20080701
  2. LAMOTRIGINE [Suspect]
     Indication: BIPOLAR DISORDER
  3. MIDRID [Suspect]
     Dates: start: 20080705
  4. CADUET [Concomitant]
  5. FENOFIBRATE [Concomitant]
  6. LEVOTHYROXINE SODIUM [Concomitant]
  7. ZOLPIDEM TARTRATE [Concomitant]

REACTIONS (9)
  - CLUMSINESS [None]
  - CONFUSIONAL STATE [None]
  - DRUG INTERACTION [None]
  - HEADACHE [None]
  - HYPOAESTHESIA [None]
  - MUSCLE TIGHTNESS [None]
  - PAIN IN EXTREMITY [None]
  - PARAESTHESIA [None]
  - TACHYPHRENIA [None]
